FAERS Safety Report 6206646-2 (Version None)
Quarter: 2009Q2

REPORT INFORMATION
  Report Type: 
  Country: None (occurrence: None)
  Receive Date: 20090528
  Receipt Date: 20090522
  Transmission Date: 20091009
  Serious: Yes (Other)
  Sender: FDA-Public Use
  Company Number: US-ASTRAZENECA-2009UW08208

PATIENT
  Age: 70 Year
  Sex: Male
  Weight: 88.5 kg

DRUGS (5)
  1. NEXIUM [Suspect]
     Indication: BARRETT'S OESOPHAGUS
     Route: 048
  2. ACTOS [Concomitant]
  3. ACCUPRIL [Concomitant]
  4. CYMBALTA [Concomitant]
  5. LIPITOR [Concomitant]

REACTIONS (1)
  - GASTRIC POLYPS [None]
